FAERS Safety Report 20744153 (Version 1)
Quarter: 2022Q2

REPORT INFORMATION
  Report Type: Spontaneous
  Country: US (occurrence: None)
  Receive Date: 20220422
  Receipt Date: 20220422
  Transmission Date: 20220721
  Serious: Yes (Death)
  Sender: FDA-Public Use
  Company Number: None

PATIENT
  Age: 65 Year
  Sex: Female

DRUGS (24)
  1. AKYNZEO (FOSNETUPITANT\PALONOSETRON HYDROCHLORIDE) [Suspect]
     Active Substance: FOSNETUPITANT\PALONOSETRON HYDROCHLORIDE
     Indication: Follicular lymphoma
     Dosage: OTHER QUANTITY : 235-0.25 MG;?OTHER FREQUENCY : ONCE Q 28 DAY;?
     Route: 042
  2. ACETAMINOPHEN\CODEINE PHOSPHATE [Concomitant]
     Active Substance: ACETAMINOPHEN\CODEINE PHOSPHATE
  3. ALBUTEROL [Concomitant]
     Active Substance: ALBUTEROL
  4. ALLOPURINOL [Concomitant]
     Active Substance: ALLOPURINOL
  5. ATORVASTATIN [Concomitant]
     Active Substance: ATORVASTATIN
  6. BENDAMUSTINE [Concomitant]
     Active Substance: BENDAMUSTINE
  7. DECADRON [Concomitant]
     Active Substance: DEXAMETHASONE
  8. BENADRYL [Concomitant]
     Active Substance: DIPHENHYDRAMINE HYDROCHLORIDE
  9. PROZAC [Concomitant]
     Active Substance: FLUOXETINE HYDROCHLORIDE
  10. PEPCID [Concomitant]
     Active Substance: FAMOTIDINE
  11. FERROUS SULFATE [Concomitant]
     Active Substance: FERROUS SULFATE
  12. FIORINAL ORAL CAPSULE [Concomitant]
  13. HYDROCHLOROTHIAZIDE ORAL TABLET [Concomitant]
  14. HYDROCORTISONE [Concomitant]
     Active Substance: HYDROCORTISONE
  15. HYDROXYZINE [Concomitant]
     Active Substance: HYDROXYZINE HYDROCHLORIDE
  16. JANUVIA [Concomitant]
     Active Substance: SITAGLIPTIN PHOSPHATE
  17. LEXAPRO [Concomitant]
     Active Substance: ESCITALOPRAM OXALATE
  18. ATIVAN [Concomitant]
     Active Substance: LORAZEPAM
  19. LOPRESSOR [Concomitant]
     Active Substance: METOPROLOL TARTRATE
  20. MUCINEX [Concomitant]
     Active Substance: GUAIFENESIN
  21. PHENERGAN [Concomitant]
     Active Substance: PROMETHAZINE HYDROCHLORIDE
  22. PROTONIX [Concomitant]
     Active Substance: PANTOPRAZOLE SODIUM
  23. RUXIENCE [Concomitant]
     Active Substance: RITUXIMAB-PVVR
  24. SINGULAIR [Concomitant]
     Active Substance: MONTELUKAST SODIUM

REACTIONS (1)
  - Death [None]

NARRATIVE: CASE EVENT DATE: 20220411
